FAERS Safety Report 10049627 (Version 1)
Quarter: 2014Q1

REPORT INFORMATION
  Report Type: Spontaneous
  Country: US (occurrence: None)
  Receive Date: 20140327
  Receipt Date: 20140327
  Transmission Date: 20141002
  Serious: Yes (Other)
  Sender: FDA-Public Use
  Company Number: None

PATIENT
  Age: 78 Year
  Sex: Female
  Weight: 83.92 kg

DRUGS (6)
  1. RANIBIZUMAB [Suspect]
     Indication: DIABETIC RETINAL OEDEMA
     Dates: start: 20140224
  2. ENOXAPRAIN [Concomitant]
  3. METOPROLOL [Concomitant]
  4. METFORMIN [Concomitant]
  5. GLIPIZIDE [Concomitant]
  6. WARFARIN [Concomitant]

REACTIONS (1)
  - Lung carcinoma cell type unspecified stage III [None]
